FAERS Safety Report 14337940 (Version 1)
Quarter: 2017Q4

REPORT INFORMATION
  Report Type: Spontaneous
  Country: FR (occurrence: FR)
  Receive Date: 20171229
  Receipt Date: 20171229
  Transmission Date: 20180321
  Serious: Yes (Hospitalization)
  Sender: FDA-Public Use
  Company Number: FR-OTSUKA-2017_027860

PATIENT
  Age: 49 Year
  Sex: Male
  Weight: 64 kg

DRUGS (7)
  1. LARGACTIL [Suspect]
     Active Substance: CHLORPROMAZINE
     Indication: PSYCHOTIC DISORDER
     Dosage: 20 MG, QD (PROD SEQ NUMBER: 010361C0-40C4-35DF-A11B-D54F97447924)
     Route: 048
  2. ARIPIPRAZOLE. [Suspect]
     Active Substance: ARIPIPRAZOLE
     Indication: PSYCHOTIC DISORDER
     Dosage: 10 MG, QD (PROD SEQ NUMBER: FC9AC3E5-2677-3C6C-8653-AB23F8F6D5CE)
     Route: 048
  3. CLOZAPINE. [Suspect]
     Active Substance: CLOZAPINE
     Indication: PSYCHOTIC DISORDER
     Dosage: 275 MG, QD (PROD SEQ NUMBER: 77C91E47-ABEE-3E5F-851B-DF33FE032DD5)
     Route: 048
     Dates: start: 20171018
  4. VITAMINE B12 [Concomitant]
     Active Substance: CYANOCOBALAMIN
     Indication: PRODUCT USED FOR UNKNOWN INDICATION
     Dosage: 1 DF, QW (PROD SEQ NUMBER: BD56094E-1A33-3D78-B0F4-6FB3320376D6)
     Route: 048
  5. SERTRALINE [Suspect]
     Active Substance: SERTRALINE HYDROCHLORIDE
     Indication: PRODUCT USED FOR UNKNOWN INDICATION
     Dosage: 100 MG, QD (PROD SEQ NUMBER : 01C28316-4B2E-38DC-985F-E0FDA711AAA5)
     Route: 048
  6. FOLINORAL [Concomitant]
     Active Substance: LEUCOVORIN CALCIUM
     Indication: PRODUCT USED FOR UNKNOWN INDICATION
     Dosage: 50 MG, QD (PROD SEQ NUMBER: 79770E97-3161-3410-BF9D-247BC77B2883)
     Route: 048
  7. THERALENE [Suspect]
     Active Substance: TRIMEPRAZINE
     Indication: PRODUCT USED FOR UNKNOWN INDICATION
     Dosage: 30 GTT, UNK (PROD SEQ NUMBER: 3773115D-18B3-308F-A5DB-F4CB3B401B19)
     Route: 048

REACTIONS (1)
  - Troponin T increased [Not Recovered/Not Resolved]

NARRATIVE: CASE EVENT DATE: 20171110
